FAERS Safety Report 6758165-2 (Version None)
Quarter: 2010Q2

REPORT INFORMATION
  Report Type: 
  Country: None (occurrence: None)
  Receive Date: 20100524
  Receipt Date: 20100218
  Transmission Date: 20101027
  Serious: No
  Sender: FDA-Public Use
  Company Number: 007413

PATIENT
  Sex: Female

DRUGS (12)
  1. CIMZIA [Suspect]
     Indication: RHEUMATOID ARTHRITIS
     Dosage: 200 MG 1X/2 WEEKS SUBCUTANEOUS
     Route: 058
  2. AUGMENTIN [Suspect]
     Indication: KIDNEY INFECTION
     Dosage: 850 MG QD, 850MG HS (BEDTIME) ORAL
     Route: 048
     Dates: start: 20100101
  3. AUGMENTIN [Suspect]
     Indication: RENAL FAILURE CHRONIC
     Dosage: 850 MG QD, 850MG HS (BEDTIME) ORAL
     Route: 048
     Dates: start: 20100101
  4. METHOTREXATE [Concomitant]
  5. CARDIZEM [Concomitant]
  6. LEVOTHYROXINE SODIUM [Concomitant]
  7. LYRICA [Concomitant]
  8. MACROBID [Concomitant]
  9. LAVAQUIN [Concomitant]
  10. PROPOXYPHENE NAPSYLATE [Concomitant]
  11. HYDROCODONE [Concomitant]
  12. LIPITOR [Concomitant]

REACTIONS (2)
  - ARTHRALGIA [None]
  - SLUGGISHNESS [None]
